FAERS Safety Report 12978303 (Version 1)
Quarter: 2016Q4

REPORT INFORMATION
  Report Type: Spontaneous
  Country: AT (occurrence: AT)
  Receive Date: 20161128
  Receipt Date: 20161128
  Transmission Date: 20170207
  Serious: Yes (Hospitalization)
  Sender: FDA-Public Use
  Company Number: AT-TEVA-712058ISR

PATIENT
  Sex: Male

DRUGS (3)
  1. PROPOFOL RATIOPHARM 10MG/ML [Suspect]
     Active Substance: PROPOFOL
     Indication: SEDATION
     Dosage: 30 MILLIGRAM DAILY; FRACTIONATED DURING GASTROSCOPY 08:38 A.M. UNTIL 09:08 A.M.
     Route: 042
     Dates: start: 20160930, end: 20160930
  2. KETANEST S 25 MG/ML [Suspect]
     Active Substance: ESKETAMINE
     Indication: SEDATION
     Dosage: 12.5 MILLIGRAM DAILY; FRACTIONATED DURING GASTROSCOPY 08:38 A.M. UNTIL 09:08 A.M.
     Route: 042
     Dates: start: 20160930, end: 20160930
  3. DORMICUM [Suspect]
     Active Substance: MIDAZOLAM\MIDAZOLAM HYDROCHLORIDE
     Indication: SEDATION
     Dosage: 2 MILLIGRAM DAILY; FRACTIONATED DURING GASTROSCOPY 08:38 A.M. UNTIL 09:08 A.M.
     Route: 042
     Dates: start: 20160930, end: 20160930

REACTIONS (3)
  - C-reactive protein increased [Unknown]
  - Chills [Unknown]
  - Pyrexia [Unknown]

NARRATIVE: CASE EVENT DATE: 20160930
